FAERS Safety Report 5566575-4 (Version None)
Quarter: 2007Q4

REPORT INFORMATION
  Report Type: 
  Country: None (occurrence: None)
  Receive Date: 20071219
  Receipt Date: 20071101
  Transmission Date: 20080405
  Serious: Yes (Hospitalization)
  Sender: FDA-Public Use
  Company Number: US-ROCHE-523004

PATIENT
  Age: 56 Year
  Sex: Male
  Weight: 76 kg

DRUGS (16)
  1. PEG-INTERFERON ALFA 2A (RO 25-8310) [Suspect]
     Indication: HEPATITIS C
     Route: 058
     Dates: start: 20060816
  2. PEG-INTERFERON ALFA 2A (RO 25-8310) [Suspect]
     Route: 058
     Dates: start: 20070509
  3. RIBAVIRIN [Suspect]
     Indication: HEPATITIS C
     Route: 048
     Dates: start: 20060816
  4. RIBAVIRIN [Suspect]
     Route: 048
     Dates: start: 20070709, end: 20070815
  5. RIBAVIRIN [Suspect]
     Route: 048
     Dates: start: 20070816, end: 20070827
  6. RIBAVIRIN [Suspect]
     Route: 048
     Dates: start: 20070829
  7. BLINDED VX-950 [Suspect]
     Indication: HEPATITIS C
     Route: 048
     Dates: start: 20060816, end: 20070827
  8. PERIACTIN [Concomitant]
     Route: 048
     Dates: start: 20070601
  9. PHENERGAN HCL [Concomitant]
     Indication: VOMITING
     Route: 048
     Dates: start: 20070815
  10. METHADONE HCL [Concomitant]
  11. WELLBUTRIN [Concomitant]
  12. NEXIUM [Concomitant]
  13. SPIRONOLACTONE [Concomitant]
  14. KLONOPIN [Concomitant]
     Dosage: FREQUENCY REPORTED AS BEDTIME.
  15. SERETIDE [Concomitant]
     Dosage: DRUG NAME REPORTED AS ADVAIR DICUS (SERETIDE MITE). STRENGTH REPORTED AS 250/50.
  16. ZOLOFT [Concomitant]

REACTIONS (1)
  - SMALL INTESTINAL OBSTRUCTION [None]
